FAERS Safety Report 9016891 (Version 1)
Quarter: 2013Q1

REPORT INFORMATION
  Report Type: Spontaneous
  Country: US (occurrence: None)
  Receive Date: 20130116
  Receipt Date: 20130116
  Transmission Date: 20140127
  Serious: No
  Sender: FDA-Public Use
  Company Number: US-HORIZON-DUE-0011-2012

PATIENT
  Age: 58 Year
  Sex: Female

DRUGS (3)
  1. DUEXIS [Suspect]
     Indication: TENOSYNOVITIS
     Route: 048
     Dates: start: 20120730
  2. MULTIVITAMIN [Concomitant]
  3. CALCIUM + D [Concomitant]

REACTIONS (2)
  - Muscle spasms [None]
  - Nerve compression [None]
